FAERS Safety Report 21263804 (Version 1)
Quarter: 2022Q3

REPORT INFORMATION
  Report Type: Report from Study
  Country: FR (occurrence: FR)
  Receive Date: 20220829
  Receipt Date: 20220829
  Transmission Date: 20221027
  Serious: Yes (Hospitalization, Other)
  Sender: FDA-Public Use
  Company Number: FR-BRISTOL-MYERS SQUIBB COMPANY-2022-096054

PATIENT
  Sex: Male
  Weight: 50 kg

DRUGS (10)
  1. NIVOLUMAB [Suspect]
     Active Substance: NIVOLUMAB
     Indication: Squamous cell carcinoma of head and neck
     Dosage: LEAD IN PHASE(D-14_D-10)
     Route: 065
     Dates: start: 20220509
  2. NIVOLUMAB [Suspect]
     Active Substance: NIVOLUMAB
     Dosage: CYCLE(D1)
     Route: 065
     Dates: start: 20220519
  3. NIVOLUMAB [Suspect]
     Active Substance: NIVOLUMAB
     Dosage: CYCLE 2(D22)
     Route: 065
     Dates: start: 20220610
  4. NIVOLUMAB [Suspect]
     Active Substance: NIVOLUMAB
     Dosage: CYCLE 3 (D43): 30-JUN-2022
     Route: 065
     Dates: start: 20220630
  5. NIVOLUMAB [Suspect]
     Active Substance: NIVOLUMAB
     Dosage: MAINTENANCE N?1
     Route: 065
     Dates: start: 20220805
  6. CISPLATIN [Suspect]
     Active Substance: CISPLATIN
     Indication: Squamous cell carcinoma of head and neck
     Dosage: 100 MG/M2= 160 MG?CYCLE 1(D1)
     Route: 065
     Dates: start: 20220519
  7. CISPLATIN [Suspect]
     Active Substance: CISPLATIN
     Dosage: 100 MG/M2= 160 MG?CYCLE 2(D22)
     Route: 065
     Dates: start: 20220611
  8. CISPLATIN [Suspect]
     Active Substance: CISPLATIN
     Dosage: 100 MG/M2= 160 MG?CYCLE 3(D43)
     Route: 065
     Dates: start: 20220630
  9. SKENAN [Concomitant]
     Active Substance: MORPHINE SULFATE
     Indication: Pain
     Dosage: DOSE AND FREQUENCY: 20 MG/7
     Route: 048
     Dates: start: 202204
  10. MORPHINE SULFATE [Concomitant]
     Active Substance: MORPHINE SULFATE
     Indication: Pain
     Dosage: PRN
     Route: 048
     Dates: start: 202204

REACTIONS (1)
  - Febrile bone marrow aplasia [Recovered/Resolved]

NARRATIVE: CASE EVENT DATE: 20220713
